FAERS Safety Report 5444144-4 (Version None)
Quarter: 2007Q3

REPORT INFORMATION
  Report Type: 
  Country: None (occurrence: None)
  Receive Date: 20070904
  Receipt Date: 20070826
  Transmission Date: 20080115
  Serious: Yes (Other)
  Sender: FDA-Public Use
  Company Number: 2007SP017346

PATIENT
  Age: 53 Year
  Sex: Male

DRUGS (2)
  1. PEG-INTRON [Suspect]
     Indication: HEPATITIS C
     Dosage: SC
     Route: 058
     Dates: start: 20070423
  2. RIBAVIRIN [Suspect]
     Indication: HEPATITIS C
     Dosage: PO
     Route: 048
     Dates: start: 20070423

REACTIONS (6)
  - HEADACHE [None]
  - HEPATIC NEOPLASM [None]
  - HEPATIC PAIN [None]
  - LYMPH NODE PAIN [None]
  - LYMPHADENOPATHY [None]
  - MENTAL IMPAIRMENT [None]
